FAERS Safety Report 16717181 (Version 3)
Quarter: 2019Q3

REPORT INFORMATION
  Report Type: Spontaneous
  Country: PT (occurrence: PT)
  Receive Date: 20190819
  Receipt Date: 20190918
  Transmission Date: 20191005
  Serious: Yes (Other)
  Sender: FDA-Public Use
  Company Number: PT-ALEXION PHARMACEUTICALS INC.-A201911717

PATIENT
  Age: 43 Year
  Sex: Male

DRUGS (3)
  1. SOLIRIS [Suspect]
     Active Substance: ECULIZUMAB
     Indication: MICROANGIOPATHY
     Dosage: UNK, QW
     Route: 065
     Dates: start: 20190222, end: 20190510
  2. PREDNISOLONE. [Concomitant]
     Active Substance: PREDNISOLONE
     Indication: GRAFT VERSUS HOST DISEASE
     Dosage: 110 MG/DAY (1.5 MG/KG/DAY)
     Route: 065
     Dates: start: 20190108
  3. SOLIRIS [Suspect]
     Active Substance: ECULIZUMAB
     Indication: OFF LABEL USE
     Dosage: 900 MG, QW
     Route: 065

REACTIONS (4)
  - Folliculitis [Recovering/Resolving]
  - Off label use [Unknown]
  - Cutaneous tuberculosis [Unknown]
  - Atypical mycobacterial infection [Recovering/Resolving]

NARRATIVE: CASE EVENT DATE: 201905
